FAERS Safety Report 9537618 (Version 4)
Quarter: 2013Q4

REPORT INFORMATION
  Report Type: Report from Study
  Country: HU (occurrence: HU)
  Receive Date: 20130919
  Receipt Date: 20131113
  Transmission Date: 20140711
  Serious: Yes (Hospitalization)
  Sender: FDA-Public Use
  Company Number: HU-B.I. PHARMACEUTICALS,INC./RIDGEFIELD-2013-BI-28391BI

PATIENT
  Age: 66 Year
  Sex: Male
  Weight: 114 kg

DRUGS (18)
  1. BIBW 2992 [Suspect]
     Indication: SQUAMOUS CELL CARCINOMA OF LUNG
     Dosage: 40 MG
     Route: 048
     Dates: start: 20130228, end: 20130327
  2. BIBW 2992 [Suspect]
     Dosage: 50 MG
     Route: 048
     Dates: start: 20130328, end: 20130717
  3. BIBW 2992 [Suspect]
     Dosage: 40 MG
     Route: 048
     Dates: start: 20130719
  4. ASPIRIN PROTECT [Suspect]
     Indication: CARDIOVASCULAR EVENT PROPHYLAXIS
     Dosage: 100 MG
     Route: 048
     Dates: start: 2009, end: 20130916
  5. CLEXANE [Suspect]
     Indication: PROPHYLAXIS
     Dosage: 0.4 MG
     Route: 058
     Dates: start: 2012, end: 20130909
  6. DIAPREL MR [Concomitant]
     Indication: DIABETES MELLITUS
     Dosage: 120 MG
     Route: 048
     Dates: start: 1999
  7. ADEXOR MR [Concomitant]
     Indication: CARDIOVASCULAR EVENT PROPHYLAXIS
     Dosage: 70 MG
     Route: 048
     Dates: start: 2009
  8. ATORIS [Concomitant]
     Indication: HYPERLIPIDAEMIA
     Dosage: 40 MG
     Route: 048
     Dates: start: 2009
  9. PLAGREL [Concomitant]
     Indication: CARDIOVASCULAR EVENT PROPHYLAXIS
     Dosage: 75 MG
     Route: 048
     Dates: start: 2009
  10. TRITACE ACT [Concomitant]
     Indication: HYPERTENSION
     Dosage: DAILY DOSE: 10MG/50G
     Route: 048
     Dates: start: 2009
  11. CORVATON [Concomitant]
     Indication: CARDIOVASCULAR EVENT PROPHYLAXIS
     Dosage: 16 MG
     Route: 048
     Dates: start: 2009
  12. PANTACID [Concomitant]
     Indication: GASTROOESOPHAGEAL REFLUX DISEASE
     Dosage: 80 MG
     Route: 048
     Dates: start: 2009
  13. TEGRETOL CR [Concomitant]
     Indication: PROPHYLAXIS
     Dosage: 400 MG
     Route: 048
     Dates: start: 2003
  14. VEROSPIRON [Concomitant]
     Indication: HYPERTENSION
     Dosage: 100 MG
     Route: 048
     Dates: start: 2009
  15. CONTRAMAL [Concomitant]
     Indication: LUNG NEOPLASM MALIGNANT
     Dosage: 300 MG
     Route: 048
     Dates: start: 2013
  16. FRONTIN [Concomitant]
     Indication: PROPHYLAXIS
     Dosage: 0.5 MG
     Route: 048
     Dates: start: 2013
  17. EUPHYLONG [Concomitant]
     Indication: CHRONIC OBSTRUCTIVE PULMONARY DISEASE
     Dosage: 500 MG
     Route: 048
     Dates: start: 2012, end: 20131002
  18. ONBREZ [Concomitant]
     Indication: CHRONIC OBSTRUCTIVE PULMONARY DISEASE
     Dosage: 150 MG
     Route: 055
     Dates: start: 2012

REACTIONS (1)
  - Anaemia [Recovered/Resolved]
